FAERS Safety Report 6525902-1 (Version None)
Quarter: 2009Q4

REPORT INFORMATION
  Report Type: 
  Country: None (occurrence: None)
  Receive Date: 20091222
  Receipt Date: 20091211
  Transmission Date: 20100525
  Serious: Yes (Other)
  Sender: FDA-Public Use
  Company Number: ALA_00398_2009

PATIENT
  Age: 28 Year
  Sex: Female

DRUGS (1)
  1. ROWASA [Suspect]
     Indication: DRUG USE FOR UNKNOWN INDICATION
     Dosage: (1000 MG/DAY, TWO SUPPOSITORIES DAILY RECTAL)
     Route: 054
     Dates: start: 20091001, end: 20090101

REACTIONS (1)
  - DRUG HYPERSENSITIVITY [None]
